FAERS Safety Report 8814786 (Version 1)
Quarter: 2012Q4

REPORT INFORMATION
  Report Type: 
  Country: US (occurrence: US)
  Receive Date: 20120928
  Receipt Date: 20120928
  Transmission Date: 20130627
  Serious: Yes (Hospitalization, Other)
  Sender: FDA-Public Use
  Company Number: US-BAYER-2012-100399

PATIENT
  Age: 44 Year
  Sex: Female
  Weight: 90.7 kg

DRUGS (7)
  1. YAZ [Suspect]
     Indication: OESTROGEN REPLACEMENT THERAPY
  2. YASMIN [Suspect]
     Indication: MENORRHAGIA
  3. NAPROSYN [Concomitant]
     Indication: CHEST DISCOMFORT
  4. IBUPROFEN [Concomitant]
     Indication: CHEST DISCOMFORT
  5. ACETAMINOPHEN [Concomitant]
     Indication: CHEST DISCOMFORT
  6. DILAUDID [Concomitant]
  7. ZOFRAN [Concomitant]
     Indication: NAUSEA

REACTIONS (2)
  - Pulmonary embolism [None]
  - Cholecystitis chronic [None]
